FAERS Safety Report 12134306 (Version 1)
Quarter: 2016Q1

REPORT INFORMATION
  Report Type: Spontaneous
  Country: SG (occurrence: SG)
  Receive Date: 20160301
  Receipt Date: 20160301
  Transmission Date: 20160526
  Serious: Yes (Other)
  Sender: FDA-Public Use
  Company Number: SG-GLAXOSMITHKLINE-SG2016GSK025284

PATIENT
  Age: 29 Year
  Sex: Female

DRUGS (1)
  1. PANADOL COLD + FLU HOT REMEDY [Suspect]
     Active Substance: ACETAMINOPHEN\ASCORBIC ACID\PHENYLEPHRINE
     Indication: PRODUCT USED FOR UNKNOWN INDICATION

REACTIONS (2)
  - Urticaria [Unknown]
  - Angioedema [Unknown]

NARRATIVE: CASE EVENT DATE: 20140101
